FAERS Safety Report 12944878 (Version 1)
Quarter: 2016Q4

REPORT INFORMATION
  Report Type: Spontaneous
  Country: ES (occurrence: ES)
  Receive Date: 20161115
  Receipt Date: 20161115
  Transmission Date: 20170207
  Serious: Yes (Other)
  Sender: FDA-Public Use
  Company Number: ES-ALLERGAN-1675727US

PATIENT
  Age: 47 Year
  Sex: Female
  Weight: 62 kg

DRUGS (1)
  1. CONSTELLA [Suspect]
     Active Substance: LINACLOTIDE
     Indication: PRODUCT USED FOR UNKNOWN INDICATION
     Dosage: 290 ?G, QD
     Route: 048
     Dates: start: 20160815, end: 20160911

REACTIONS (3)
  - Laryngospasm [Unknown]
  - Respiratory failure [Unknown]
  - Dry throat [Unknown]

NARRATIVE: CASE EVENT DATE: 201609
